FAERS Safety Report 8187139-2 (Version None)
Quarter: 2012Q1

REPORT INFORMATION
  Report Type: 
  Country: None (occurrence: None)
  Receive Date: 20120306
  Receipt Date: 20120301
  Transmission Date: 20120608
  Serious: Yes (Hospitalization)
  Sender: FDA-Public Use
  Company Number: US-ACTELION-A-US2012-61829

PATIENT

DRUGS (5)
  1. COUMADIN [Concomitant]
  2. REVATIO [Concomitant]
  3. TRACLEER [Suspect]
     Indication: PULMONARY ARTERIAL HYPERTENSION
     Dosage: UNK
     Route: 048
     Dates: start: 20110412
  4. CALCIUM CHANNEL BLOCKERS [Concomitant]
  5. VENTAVIS [Suspect]
     Indication: PULMONARY ARTERIAL HYPERTENSION
     Dosage: UNK
     Route: 055
     Dates: start: 20111031

REACTIONS (6)
  - RESPIRATORY DISTRESS [None]
  - VENTRICULAR TACHYCARDIA [None]
  - DYSPNOEA [None]
  - MYOCARDIAL INFARCTION [None]
  - FATIGUE [None]
  - PYREXIA [None]
